FAERS Safety Report 6903200-1 (Version None)
Quarter: 2010Q3

REPORT INFORMATION
  Report Type: 
  Country: None (occurrence: None)
  Receive Date: 20100803
  Receipt Date: 20080622
  Transmission Date: 20110219
  Serious: Yes (Other)
  Sender: FDA-Public Use
  Company Number: US-PFIZER INC-2008053193

PATIENT
  Sex: Female
  Weight: 68 kg

DRUGS (4)
  1. LYRICA [Suspect]
     Indication: FIBROMYALGIA
     Dates: start: 20080601
  2. DARVOCET [Concomitant]
  3. SOMA [Concomitant]
  4. NIFEDIPINE [Concomitant]

REACTIONS (6)
  - APHASIA [None]
  - DIZZINESS [None]
  - MENTAL IMPAIRMENT [None]
  - PARAESTHESIA [None]
  - SPEECH DISORDER [None]
  - TINNITUS [None]
